FAERS Safety Report 8789543 (Version 1)
Quarter: 2012Q4

REPORT INFORMATION
  Report Type: Spontaneous
  Country: US (occurrence: None)
  Receive Date: 20120905
  Receipt Date: 20120905
  Transmission Date: 20130627
  Serious: Yes (Hospitalization)
  Sender: FDA-Public Use
  Company Number: US-1193748

PATIENT
  Age: 56 Year
  Sex: Male
  Weight: 113.4 kg

DRUGS (1)
  1. CIPRODEX [Suspect]
     Indication: OTITIS EXTERNA
     Route: 061
     Dates: start: 20120814

REACTIONS (5)
  - Auricular swelling [None]
  - External ear disorder [None]
  - Instillation site pain [None]
  - Instillation site pain [None]
  - External ear inflammation [None]
